FAERS Safety Report 6845591-6 (Version None)
Quarter: 2010Q3

REPORT INFORMATION
  Report Type: 
  Country: None (occurrence: None)
  Receive Date: 20100715
  Receipt Date: 20080807
  Transmission Date: 20110219
  Serious: No
  Sender: FDA-Public Use
  Company Number: US-PFIZER INC-2007070495

PATIENT
  Sex: Female
  Weight: 89.36 kg

DRUGS (10)
  1. CHANTIX [Suspect]
     Indication: SMOKING CESSATION THERAPY
     Dosage: 0.5 MG, 1X/DAY
     Route: 048
     Dates: start: 20070101
  2. ALLEGRA [Concomitant]
  3. ALBUTEROL [Concomitant]
     Route: 055
  4. ADVAIR DISKUS 100/50 [Concomitant]
  5. SPIRIVA [Concomitant]
  6. PREDNISOLONE [Concomitant]
  7. XANAX [Concomitant]
  8. LEXAPRO [Concomitant]
  9. TRAZODONE HYDROCHLORIDE [Concomitant]
  10. PREMARIN [Concomitant]

REACTIONS (3)
  - ABNORMAL DREAMS [None]
  - DRUG INEFFECTIVE [None]
  - NAUSEA [None]
